FAERS Safety Report 6107975-3 (Version None)
Quarter: 2009Q1

REPORT INFORMATION
  Report Type: 
  Country: None (occurrence: None)
  Receive Date: 20090309
  Receipt Date: 20090226
  Transmission Date: 20090719
  Serious: Yes (Hospitalization)
  Sender: FDA-Public Use
  Company Number: CH-ASTRAZENECA-2009PK00699

PATIENT
  Age: 81 Year
  Sex: Female

DRUGS (5)
  1. NEXIUM [Suspect]
     Indication: OESOPHAGITIS
     Route: 048
     Dates: start: 20090117, end: 20090122
  2. VENLAFAXINE HCL [Concomitant]
     Indication: MAJOR DEPRESSION
     Route: 048
     Dates: start: 20090119
  3. APROVEL [Concomitant]
     Route: 048
  4. TEMGESIC [Concomitant]
     Route: 048
     Dates: start: 20090119
  5. ROCEPHIN [Concomitant]
     Route: 040
     Dates: start: 20090110, end: 20090113

REACTIONS (1)
  - LIVER INJURY [None]
